FAERS Safety Report 8850775 (Version 1)
Quarter: 2012Q4

REPORT INFORMATION
  Report Type: 
  Country: US (occurrence: US)
  Receive Date: 20121019
  Receipt Date: 20121019
  Transmission Date: 20130627
  Serious: Yes (Other)
  Sender: FDA-Public Use
  Company Number: US-ELI_LILLY_AND_COMPANY-US201210003816

PATIENT
  Age: 53 Year
  Sex: Female

DRUGS (2)
  1. FORTEO [Suspect]
     Indication: OSTEOPOROSIS
     Dosage: 20 ug, qd
     Dates: end: 201104
  2. FORTEO [Suspect]
     Dosage: 20 ug, qd

REACTIONS (6)
  - Loss of consciousness [Unknown]
  - Foot fracture [Unknown]
  - Body height decreased [Unknown]
  - Drug dose omission [Unknown]
  - Memory impairment [Unknown]
  - Fatigue [Unknown]
